FAERS Safety Report 7212072-X (Version None)
Quarter: 2010Q4

REPORT INFORMATION
  Report Type: 
  Country: None (occurrence: None)
  Receive Date: 20101228
  Receipt Date: 20101215
  Transmission Date: 20110411
  Serious: Yes (Congenital Anomaly, Other)
  Sender: FDA-Public Use
  Company Number: 002642

PATIENT
  Sex: Female

DRUGS (1)
  1. LEVETIRACETAM [Suspect]
     Indication: EPILEPSY
     Dosage: 3500 MG QD, TRANSPLACENTAL
     Route: 064
     Dates: start: 20081102

REACTIONS (7)
  - COGNITIVE DISORDER [None]
  - DERMOID CYST [None]
  - HAEMANGIOMA CONGENITAL [None]
  - MATERNAL DRUGS AFFECTING FOETUS [None]
  - MUSCULAR WEAKNESS [None]
  - SOCIAL PROBLEM [None]
  - SPEECH DISORDER DEVELOPMENTAL [None]
